FAERS Safety Report 21679480 (Version 1)
Quarter: 2022Q4

REPORT INFORMATION
  Report Type: Spontaneous
  Country: US (occurrence: US)
  Receive Date: 20221205
  Receipt Date: 20221205
  Transmission Date: 20230112
  Serious: No
  Sender: FDA-Public Use
  Company Number: US-SA-SAC20221202000527

PATIENT
  Age: 65 Year
  Sex: Male

DRUGS (5)
  1. DUPIXENT [Suspect]
     Active Substance: DUPILUMAB
     Dosage: 1 DF, QOW
     Route: 058
     Dates: start: 20211011
  2. XOPENEX HFA [Concomitant]
     Active Substance: LEVALBUTEROL TARTRATE
  3. TRIAMCINOLONE ACETONIDE [Concomitant]
     Active Substance: TRIAMCINOLONE ACETONIDE
     Route: 061
  4. QVAR [Concomitant]
     Active Substance: BECLOMETHASONE DIPROPIONATE
  5. MOMETASONE FUROATE [Concomitant]
     Active Substance: MOMETASONE FUROATE

REACTIONS (2)
  - Infection [Unknown]
  - Pyrexia [Unknown]

NARRATIVE: CASE EVENT DATE: 20221122
